FAERS Safety Report 6572336-X (Version None)
Quarter: 2010Q1

REPORT INFORMATION
  Report Type: 
  Country: None (occurrence: None)
  Receive Date: 20100205
  Receipt Date: 20100126
  Transmission Date: 20100710
  Serious: Yes (Hospitalization, Other)
  Sender: FDA-Public Use
  Company Number: US-WATSON-2010-01137

PATIENT
  Age: 60 Year
  Sex: Female

DRUGS (3)
  1. HYDROCODONE BITARTRATE AND ACETAMINOPHEN [Suspect]
     Indication: DRUG USE FOR UNKNOWN INDICATION
     Dosage: UNK
  2. PROPOXYPHENE [Suspect]
     Indication: ANALGESIC THERAPY
  3. DEXTROMETHORPHAN [Suspect]
     Indication: UPPER RESPIRATORY TRACT INFECTION

REACTIONS (3)
  - AGITATION [None]
  - INHIBITORY DRUG INTERACTION [None]
  - PSYCHOTIC DISORDER [None]
